FAERS Safety Report 19272905 (Version 11)
Quarter: 2021Q3

REPORT INFORMATION
  Report Type: Spontaneous
  Country: CA (occurrence: CA)
  Receive Date: 20210519
  Receipt Date: 20210927
  Transmission Date: 20211014
  Serious: Yes (Hospitalization, Other)
  Sender: FDA-Public Use
  Company Number: CA-CELLTRION INC.-2021CA006029

PATIENT

DRUGS (13)
  1. INFLECTRA [Suspect]
     Active Substance: INFLIXIMAB-DYYB
     Indication: CROHN^S DISEASE
     Dosage: 5 MG/KG, 1/10 DOSE RECEIVED ON 29MAR2021
     Route: 042
     Dates: start: 20210329, end: 20210329
  2. GRAVOL [Concomitant]
     Active Substance: DIMENHYDRINATE
     Indication: PREMEDICATION
     Dosage: 50 MG
     Route: 042
  3. INFLECTRA [Suspect]
     Active Substance: INFLIXIMAB-DYYB
     Dosage: 5 MG/KG, Q 2, 6 WEEKS ,THEN EVERY 8 WEEKS
     Route: 042
     Dates: start: 20210510
  4. CORTEF [HYDROCORTISONE ACETATE] [Concomitant]
     Active Substance: HYDROCORTISONE ACETATE
     Dosage: 15 MG, 1X/DAY(10 MG IN MORNING AND 5 MG IN EVENING )
     Route: 048
  5. INFLECTRA [Suspect]
     Active Substance: INFLIXIMAB-DYYB
     Dosage: 5 MG/KG, Q 2, 6 WEEKS ,THEN EVERY 8 WEEKS
     Route: 042
     Dates: start: 20210709
  6. CALCIUM [Concomitant]
     Active Substance: CALCIUM
     Dosage: UNK
  7. VIT D [COLECALCIFEROL] [Concomitant]
     Dosage: UNK
  8. INFLECTRA [Suspect]
     Active Substance: INFLIXIMAB-DYYB
     Dosage: 5 MG/KG, FULL DOSE RECEIVED ON 02APR2021
     Route: 042
     Dates: start: 20210402, end: 20210402
  9. INFLECTRA [Suspect]
     Active Substance: INFLIXIMAB-DYYB
     Dosage: 5 MG/KG, Q 2, 6 WEEKS ,THEN EVERY 8 WEEKS
     Route: 042
     Dates: start: 20210708
  10. BENADRYL [Concomitant]
     Active Substance: DIPHENHYDRAMINE HYDROCHLORIDE
     Indication: PREMEDICATION
     Dosage: 50 MG
     Route: 048
  11. INFLECTRA [Suspect]
     Active Substance: INFLIXIMAB-DYYB
     Dosage: 5 MG/KG, Q 2, 6 WEEKS ,THEN EVERY 8 WEEKS
     Route: 042
     Dates: start: 20210415
  12. INFLECTRA [Suspect]
     Active Substance: INFLIXIMAB-DYYB
     Dosage: 5 MG/KG, Q 2, 6 WEEKS ,THEN EVERY 8 WEEKS
     Route: 042
     Dates: start: 20210721
  13. DOMPERIDONE [Concomitant]
     Active Substance: DOMPERIDONE
     Dosage: UNK

REACTIONS (23)
  - Vomiting [Not Recovered/Not Resolved]
  - Peripheral swelling [Not Recovered/Not Resolved]
  - Swelling face [Unknown]
  - Burning sensation [Unknown]
  - Contusion [Not Recovered/Not Resolved]
  - Abdominal pain [Unknown]
  - Fatigue [Not Recovered/Not Resolved]
  - Asthenia [Not Recovered/Not Resolved]
  - Erythema [Unknown]
  - Nausea [Not Recovered/Not Resolved]
  - Poor venous access [Unknown]
  - Vein rupture [Not Recovered/Not Resolved]
  - Off label use [Unknown]
  - Headache [Recovered/Resolved]
  - Swelling [Unknown]
  - Hypersensitivity [Recovered/Resolved]
  - Abdominal distension [Unknown]
  - Pain [Unknown]
  - Malaise [Unknown]
  - Injection site extravasation [Unknown]
  - Pruritus [Recovered/Resolved]
  - Muscle spasms [Unknown]
  - Incorrect dose administered [Unknown]

NARRATIVE: CASE EVENT DATE: 2021
